FAERS Safety Report 17724459 (Version 1)
Quarter: 2020Q2

REPORT INFORMATION
  Report Type: Spontaneous
  Country: US (occurrence: US)
  Receive Date: 20200429
  Receipt Date: 20200429
  Transmission Date: 20200714
  Serious: No
  Sender: FDA-Public Use
  Company Number: US-PERRIGO-19US012719

PATIENT
  Age: 73 Year
  Sex: Female
  Weight: 59.86 kg

DRUGS (3)
  1. FAMOTIDINE. [Suspect]
     Active Substance: FAMOTIDINE
     Indication: GASTROOESOPHAGEAL REFLUX DISEASE
     Dosage: 20 MG, BID
     Route: 048
     Dates: start: 20191008, end: 20191022
  2. ENALAPRIL HYDROCHLOROTHIAZIDE EG [Concomitant]
     Active Substance: ENALAPRIL\HYDROCHLOROTHIAZIDE
     Indication: HYPERTENSION
     Dosage: 2 TABLETS
     Route: 065
  3. EXEMESTANE. [Concomitant]
     Active Substance: EXEMESTANE
     Indication: PROPHYLAXIS
     Dosage: UNK
     Route: 065

REACTIONS (3)
  - Gastritis [Not Recovered/Not Resolved]
  - Drug ineffective [Unknown]
  - Incorrect dose administered [Recovered/Resolved]

NARRATIVE: CASE EVENT DATE: 20191008
